FAERS Safety Report 5266950-1 (Version None)
Quarter: 2007Q1

REPORT INFORMATION
  Report Type: 
  Country: None (occurrence: None)
  Receive Date: 20070312
  Receipt Date: 20070301
  Transmission Date: 20070707
  Serious: Yes (Hospitalization)
  Sender: FDA-Public Use
  Company Number: MEDI-0005255

PATIENT
  Age: 59 Year
  Sex: Male
  Weight: 63.6397 kg

DRUGS (9)
  1. ETHYOL [Suspect]
     Indication: RADIOTHERAPY
     Dosage: 500 MG, 5 IN 5 D, SUBCUTANEOUS
     Route: 058
     Dates: start: 20061026, end: 20061124
  2. ETHYOL [Suspect]
     Indication: TONGUE NEOPLASM MALIGNANT STAGE UNSPECIFIED
     Dosage: 500 MG, 5 IN 5 D, SUBCUTANEOUS
     Route: 058
     Dates: start: 20061026, end: 20061124
  3. RADIATION THERAPY [Concomitant]
  4. UNKNOWN CHEMOTHERAPY DRUG [Concomitant]
  5. NORVASC [Concomitant]
  6. SIMVASTATIN [Concomitant]
  7. ISOSORBIDE (ISOSORBIDE) [Concomitant]
  8. NIACIB (NICOTINIC ACID) [Concomitant]
  9. OXYCODONE HCL [Concomitant]

REACTIONS (18)
  - CHILLS [None]
  - DEHYDRATION [None]
  - MALAISE [None]
  - MUCOSAL EROSION [None]
  - MUCOSAL INFLAMMATION [None]
  - NAUSEA [None]
  - ORAL INTAKE REDUCED [None]
  - PAIN [None]
  - PHARYNGOLARYNGEAL PAIN [None]
  - PRURITUS [None]
  - PYREXIA [None]
  - RADIATION SKIN INJURY [None]
  - RASH PAPULAR [None]
  - SKIN BURNING SENSATION [None]
  - SKIN CHAPPED [None]
  - SKIN EXFOLIATION [None]
  - STOMATITIS [None]
  - WEIGHT DECREASED [None]
